FAERS Safety Report 11758576 (Version 1)
Quarter: 2015Q4

REPORT INFORMATION
  Report Type: Spontaneous
  Country: US (occurrence: None)
  Receive Date: 20151119
  Receipt Date: 20151119
  Transmission Date: 20160304
  Serious: Yes (Disabling)
  Sender: FDA-Public Use
  Company Number: None

PATIENT
  Age: 46 Year
  Sex: Female
  Weight: 63.5 kg

DRUGS (1)
  1. METHYLPREDNISOLONE 40MG CADISTA [Suspect]
     Active Substance: METHYLPREDNISOLONE
     Indication: INCISION SITE RASH
     Dosage: 10 PILLS  6 PILLS DAY 1
     Route: 048
     Dates: start: 20150824, end: 20150829

REACTIONS (8)
  - Night sweats [None]
  - Asthenia [None]
  - Fatigue [None]
  - Mood altered [None]
  - Gait disturbance [None]
  - Hot flush [None]
  - Myopathy [None]
  - Myalgia [None]

NARRATIVE: CASE EVENT DATE: 20150826
